FAERS Safety Report 10249138 (Version 1)
Quarter: 2014Q2

REPORT INFORMATION
  Report Type: Spontaneous
  Country: US (occurrence: None)
  Receive Date: 20140619
  Receipt Date: 20140619
  Transmission Date: 20141212
  Serious: Yes (Disabling)
  Sender: FDA-Public Use
  Company Number: None

PATIENT
  Age: 45 Year
  Sex: Female
  Weight: 72.58 kg

DRUGS (2)
  1. CIPRO [Suspect]
     Indication: INFECTION PROPHYLAXIS
     Dates: start: 20130801, end: 20130803
  2. LEVAQUIN [Suspect]
     Indication: BRONCHITIS
     Dosage: ONE PILL, THREE TIMES DAILY
     Dates: start: 20130101

REACTIONS (5)
  - Hypoaesthesia [None]
  - Hypoaesthesia [None]
  - Myalgia [None]
  - Tendonitis [None]
  - Tendon rupture [None]
